FAERS Safety Report 6259412-6 (Version None)
Quarter: 2009Q3

REPORT INFORMATION
  Report Type: 
  Country: None (occurrence: None)
  Receive Date: 20090706
  Receipt Date: 20090624
  Transmission Date: 20100115
  Serious: Yes (Other)
  Sender: FDA-Public Use
  Company Number: 200906019

PATIENT
  Sex: Female

DRUGS (1)
  1. TESTIM [Suspect]
     Dosage: TRANSDERMAL
     Route: 062

REACTIONS (3)
  - ACCIDENTAL EXPOSURE [None]
  - BLOOD TESTOSTERONE INCREASED [None]
  - HAIR GROWTH ABNORMAL [None]
